FAERS Safety Report 16031199 (Version 3)
Quarter: 2019Q2

REPORT INFORMATION
  Report Type: Report from Study
  Country: US (occurrence: US)
  Receive Date: 20190304
  Receipt Date: 20190514
  Transmission Date: 20190711
  Serious: Yes (Other)
  Sender: FDA-Public Use
  Company Number: PHEH2019US009216

PATIENT
  Age: 40 Year
  Sex: Female

DRUGS (1)
  1. GILENYA [Suspect]
     Active Substance: FINGOLIMOD HYDROCHLORIDE
     Indication: MULTIPLE SCLEROSIS
     Dosage: 0.5 MG, UNK
     Route: 048
     Dates: start: 20190206

REACTIONS (6)
  - Limb discomfort [Not Recovered/Not Resolved]
  - Temperature intolerance [Unknown]
  - Multiple sclerosis relapse [Unknown]
  - Heart rate irregular [Unknown]
  - Amnesia [Unknown]
  - Band sensation [Unknown]

NARRATIVE: CASE EVENT DATE: 20190225
